FAERS Safety Report 9557285 (Version 2)
Quarter: 2013Q4

REPORT INFORMATION
  Report Type: Spontaneous
  Country: FR (occurrence: FR)
  Receive Date: 20130926
  Receipt Date: 20131010
  Transmission Date: 20140711
  Serious: Yes (Hospitalization, Other)
  Sender: FDA-Public Use
  Company Number: FR-ABBVIE-13P-056-1150872-00

PATIENT
  Age: 39 Year
  Sex: Male
  Weight: 62 kg

DRUGS (2)
  1. HUMIRA [Suspect]
     Indication: CROHN^S DISEASE
     Route: 058
     Dates: start: 20121020, end: 20130730
  2. IMUREL [Concomitant]
     Indication: CROHN^S DISEASE
     Route: 048
     Dates: start: 20120919, end: 20130701

REACTIONS (2)
  - VIIth nerve paralysis [Recovering/Resolving]
  - Multiple sclerosis [Unknown]
